FAERS Safety Report 16429273 (Version 1)
Quarter: 2019Q2

REPORT INFORMATION
  Report Type: Spontaneous
  Country: FR (occurrence: FR)
  Receive Date: 20190614
  Receipt Date: 20190614
  Transmission Date: 20190711
  Serious: Yes (Hospitalization)
  Sender: FDA-Public Use
  Company Number: FR-ZYDUS-037571

PATIENT
  Age: 75 Year
  Sex: Male
  Weight: 78 kg

DRUGS (11)
  1. HYDROCHLOROTHIAZIDE. [Concomitant]
     Active Substance: HYDROCHLOROTHIAZIDE
  2. METFORMIN [Concomitant]
     Active Substance: METFORMIN HYDROCHLORIDE
  3. SOLIFENACIN [Concomitant]
     Active Substance: SOLIFENACIN
  4. VALACICLOVIR [Suspect]
     Active Substance: VALACYCLOVIR HYDROCHLORIDE
     Indication: HERPES ZOSTER
     Route: 048
     Dates: start: 20190509, end: 20190521
  5. ATORVASTATIN [Concomitant]
     Active Substance: ATORVASTATIN
  6. SOTALOL/SOTALOL HYDROCHLORIDE [Concomitant]
  7. SERENOA REPENS [Concomitant]
     Active Substance: SERENOA REPENS WHOLE
  8. SITAGLIPTIN [Concomitant]
     Active Substance: SITAGLIPTIN
  9. SILODOSINE [Concomitant]
     Active Substance: SILODOSIN
  10. LOSARTAN/LOSARTAN POTASSIUM [Concomitant]
  11. ACETYLSALICYLATE LYSINE/ACETYLSALICYLIC ACID [Concomitant]

REACTIONS (2)
  - Mutism [Recovered/Resolved]
  - Encephalopathy [Recovering/Resolving]

NARRATIVE: CASE EVENT DATE: 20190514
